FAERS Safety Report 9190671 (Version 5)
Quarter: 2013Q2

REPORT INFORMATION
  Report Type: Spontaneous
  Country: NL (occurrence: NL)
  Receive Date: 20130326
  Receipt Date: 20130429
  Transmission Date: 20140414
  Serious: Yes (Other)
  Sender: FDA-Public Use
  Company Number: NL-BAXTER-2013BAX005844

PATIENT
  Sex: Male

DRUGS (4)
  1. KIOVIG 100 MG/ML SOLUTION POUR PERFUSION (20 G/200 ML) [Suspect]
     Indication: PRODUCT USED FOR UNKNOWN INDICATION
     Route: 065
     Dates: start: 20120716, end: 20120716
  2. KIOVIG 100 MG/ML SOLUTION POUR PERFUSION (20 G/200 ML) [Suspect]
     Route: 065
     Dates: start: 20121210, end: 20121210
  3. KIOVIG 100 MG/ML SOLUTION POUR PERFUSION (5 G/50 ML) [Suspect]
     Indication: PRODUCT USED FOR UNKNOWN INDICATION
     Route: 065
     Dates: start: 20120716, end: 20120716
  4. KIOVIG 100 MG/ML SOLUTION POUR PERFUSION (5 G/50 ML) [Suspect]
     Route: 065
     Dates: start: 20121210, end: 20121210

REACTIONS (4)
  - Urticaria [Unknown]
  - Pruritus generalised [Unknown]
  - Blister [Unknown]
  - Excoriation [Unknown]
